FAERS Safety Report 4816302-0 (Version None)
Quarter: 2005Q4

REPORT INFORMATION
  Report Type: 
  Country: None (occurrence: None)
  Receive Date: 20051031
  Receipt Date: 20050310
  Transmission Date: 20060501
  Serious: Yes (Hospitalization)
  Sender: FDA-Public Use
  Company Number: US-MERCK-0503USA02042

PATIENT
  Age: 31 Year
  Sex: Female
  Weight: 141 kg

DRUGS (6)
  1. VIOXX [Suspect]
     Indication: ABDOMINAL PAIN
     Route: 048
     Dates: start: 20000101, end: 20010101
  2. VIOXX [Suspect]
     Indication: MUSCLE SPASMS
     Route: 048
     Dates: start: 20000101, end: 20010101
  3. ZOLOFT [Concomitant]
     Route: 065
     Dates: start: 20010101, end: 20040101
  4. TYLENOL (CAPLET) [Concomitant]
     Route: 065
  5. AMBIEN [Concomitant]
     Route: 065
  6. CELEXA [Concomitant]
     Route: 065
     Dates: start: 20000101

REACTIONS (22)
  - ABDOMINAL PAIN UPPER [None]
  - BLOOD PRESSURE INCREASED [None]
  - CHEST PAIN [None]
  - DEPRESSION [None]
  - DIABETES MELLITUS [None]
  - HEADACHE [None]
  - HOMICIDAL IDEATION [None]
  - HYPOKALAEMIA [None]
  - MAJOR DEPRESSION [None]
  - OBESITY [None]
  - OOPHORECTOMY [None]
  - POST-TRAUMATIC STRESS DISORDER [None]
  - PRURITUS [None]
  - PSYCHOTIC DISORDER [None]
  - PYURIA [None]
  - SCHIZOAFFECTIVE DISORDER [None]
  - SLEEP APNOEA SYNDROME [None]
  - SUICIDAL IDEATION [None]
  - THROMBOSIS [None]
  - URTICARIA [None]
  - UTERINE LEIOMYOMA [None]
  - VOMITING [None]
